FAERS Safety Report 8088058-2 (Version None)
Quarter: 2012Q1

REPORT INFORMATION
  Report Type: 
  Country: None (occurrence: None)
  Receive Date: 20120128
  Receipt Date: 20110527
  Transmission Date: 20120608
  Serious: No
  Sender: FDA-Public Use
  Company Number: US-ABBOTT-11P-163-0729201-00

PATIENT
  Age: 46 Year
  Sex: Male

DRUGS (4)
  1. HUMIRA [Suspect]
     Indication: PSORIASIS
     Dates: start: 20110517
  2. LISINOPRIL [Concomitant]
     Indication: HYPERTENSION
  3. HYDROXYZINE [Concomitant]
     Indication: PRURITUS
  4. HYDROXYZINE [Concomitant]
     Indication: PSORIASIS

REACTIONS (5)
  - LIP DRY [None]
  - URTICARIA [None]
  - CHAPPED LIPS [None]
  - PRURITUS [None]
  - DRY SKIN [None]
